FAERS Safety Report 5816302-8 (Version None)
Quarter: 2008Q3

REPORT INFORMATION
  Report Type: 
  Country: None (occurrence: None)
  Receive Date: 20080721
  Receipt Date: 20080716
  Transmission Date: 20090109
  Serious: Yes (Hospitalization)
  Sender: FDA-Public Use
  Company Number: PH-BRISTOL-MYERS SQUIBB COMPANY-14110589

PATIENT
  Age: 62 Year
  Sex: Female

DRUGS (7)
  1. BLINDED: SAXAGLIPTIN [Suspect]
     Indication: TYPE 2 DIABETES MELLITUS
     Dosage: 1 DOSAGE FORM = 1 TAB.
     Route: 048
     Dates: start: 20061107
  2. METFORMIN HCL [Suspect]
     Indication: TYPE 2 DIABETES MELLITUS
     Route: 048
     Dates: start: 20070606, end: 20080310
  3. BLINDED: PLACEBO [Suspect]
     Indication: TYPE 2 DIABETES MELLITUS
     Route: 048
     Dates: start: 20061107
  4. PIOGLITAZONE HCL [Concomitant]
     Route: 048
     Dates: start: 20061107
  5. ALENDRONATE SODIUM [Concomitant]
     Dates: start: 20070718
  6. ATORVASTATIN CALCIUM [Concomitant]
     Dates: start: 20070708
  7. PENTOXIFYLLINE [Concomitant]
     Dates: start: 20070509, end: 20080310

REACTIONS (1)
  - GASTRITIS [None]
